FAERS Safety Report 24627012 (Version 1)
Quarter: 2024Q4

REPORT INFORMATION
  Report Type: Spontaneous
  Country: FR (occurrence: FR)
  Receive Date: 20241115
  Receipt Date: 20241115
  Transmission Date: 20250114
  Serious: Yes (Hospitalization)
  Sender: SANDOZ
  Company Number: FR-JNJFOC-20220962593

PATIENT
  Age: 21 Year
  Sex: Female
  Weight: 54 kg

DRUGS (11)
  1. ACETAMINOPHEN [Suspect]
     Active Substance: ACETAMINOPHEN
     Indication: Suicide attempt
     Dosage: UNK
     Route: 048
  2. ACETAMINOPHEN [Suspect]
     Active Substance: ACETAMINOPHEN
     Indication: Pain
  3. SPRAVATO [Suspect]
     Active Substance: ESKETAMINE
     Indication: Depression
     Dosage: 56 MG ROUTE OF ADMIN (FREE TEXT): INTRA-NASAL
     Route: 065
     Dates: start: 20220929, end: 20220929
  4. SPRAVATO [Suspect]
     Active Substance: ESKETAMINE
     Dosage: 56 MG ROUTE OF ADMIN (FREE TEXT): INTRA-NASAL
     Route: 065
     Dates: start: 20220927, end: 20220927
  5. SPRAVATO [Suspect]
     Active Substance: ESKETAMINE
     Dosage: 56 MG ROUTE OF ADMIN (FREE TEXT): INTRA-NASAL
     Route: 065
     Dates: start: 2022, end: 20221122
  6. LEVOTHYROXINE [Concomitant]
     Active Substance: LEVOTHYROXINE
     Indication: Hypothyroidism
     Dosage: UNK
     Route: 065
     Dates: start: 20190202
  7. LEVOTHYROXINE [Concomitant]
     Active Substance: LEVOTHYROXINE
     Route: 065
     Dates: start: 20190202
  8. LOXAPINE [Concomitant]
     Active Substance: LOXAPINE
     Indication: Insomnia
     Dosage: UNK
     Route: 065
     Dates: start: 20210715
  9. LOXAPINE [Concomitant]
     Active Substance: LOXAPINE
     Route: 065
     Dates: start: 20210715
  10. VENLAFAXINE [Concomitant]
     Active Substance: VENLAFAXINE HYDROCHLORIDE
     Indication: Depression
     Dosage: UNK
     Route: 065
     Dates: start: 20210722
  11. VENLAFAXINE [Concomitant]
     Active Substance: VENLAFAXINE HYDROCHLORIDE
     Route: 065
     Dates: start: 20210722

REACTIONS (3)
  - Suicide attempt [Recovered/Resolved]
  - Dissociative disorder [Recovering/Resolving]
  - Drug ineffective [Recovered/Resolved]

NARRATIVE: CASE EVENT DATE: 20220927
